FAERS Safety Report 16122148 (Version 1)
Quarter: 2019Q2

REPORT INFORMATION
  Report Type: Spontaneous
  Country: US (occurrence: US)
  Receive Date: 20190326
  Receipt Date: 20190326
  Transmission Date: 20190711
  Serious: Yes (Hospitalization)
  Sender: FDA-Public Use
  Company Number: None

PATIENT
  Age: 77 Year
  Sex: Male
  Weight: 92.25 kg

DRUGS (1)
  1. CHLORHEXIDINE USED BY CORE HOSPITAL [Suspect]
     Active Substance: CHLORHEXIDINE
     Indication: KNEE ARTHROPLASTY
     Route: 061
     Dates: start: 20181009, end: 20181009

REACTIONS (1)
  - Application site vesicles [None]

NARRATIVE: CASE EVENT DATE: 20181009
